FAERS Safety Report 9018042 (Version 1)
Quarter: 2013Q1

REPORT INFORMATION
  Report Type: Spontaneous
  Country: US (occurrence: None)
  Receive Date: 20130110
  Receipt Date: 20130110
  Transmission Date: 20140127
  Serious: No
  Sender: FDA-Public Use
  Company Number: None

PATIENT
  Age: 44 Year
  Sex: Female
  Weight: 87.3 kg

DRUGS (1)
  1. NITROGLYCERIN [Suspect]
     Indication: CHEST PAIN
     Dosage: 0.4 MG ONCE SUBLINGUAL
     Route: 060
     Dates: start: 20130107, end: 20130107

REACTIONS (6)
  - Headache [None]
  - Rash [None]
  - Nausea [None]
  - Vomiting [None]
  - Palpitations [None]
  - Hypertension [None]
